FAERS Safety Report 5792583-4 (Version None)
Quarter: 2008Q2

REPORT INFORMATION
  Report Type: 
  Country: None (occurrence: None)
  Receive Date: 20080626
  Receipt Date: 20080615
  Transmission Date: 20081010
  Serious: Yes (Hospitalization)
  Sender: FDA-Public Use
  Company Number: IL-GENENTECH-263236

PATIENT
  Age: 35 Year
  Sex: Female

DRUGS (7)
  1. MABTHERA [Suspect]
     Indication: SYSTEMIC LUPUS ERYTHEMATOSUS
     Dosage: 1000 MG, UNK
     Route: 042
     Dates: start: 20080526
  2. ACAMOL [Concomitant]
     Indication: DRUG USE FOR UNKNOWN INDICATION
     Dosage: UNK, UNK
     Dates: start: 20080526
  3. PHENERGAN HCL [Concomitant]
     Indication: PREMEDICATION
     Dosage: 125 MG, UNK
     Dates: start: 20080526
  4. ASPIRIN [Concomitant]
     Indication: PREMEDICATION
     Dosage: 1 G, UNK
  5. METHYLPREDNISOLONE [Concomitant]
     Indication: PREMEDICATION
     Dosage: 50 MG, UNK
     Dates: start: 20080526
  6. COUMADIN [Concomitant]
     Indication: DRUG USE FOR UNKNOWN INDICATION
  7. PLAQUENIL [Concomitant]
     Indication: DRUG USE FOR UNKNOWN INDICATION

REACTIONS (4)
  - NEUROPATHY PERIPHERAL [None]
  - PNEUMONITIS [None]
  - PULMONARY OEDEMA [None]
  - TACHYCARDIA [None]
